FAERS Safety Report 13932337 (Version 2)
Quarter: 2017Q3

REPORT INFORMATION
  Report Type: Spontaneous
  Country: US (occurrence: US)
  Receive Date: 20170904
  Receipt Date: 20170920
  Transmission Date: 20171127
  Serious: No
  Sender: FDA-Public Use
  Company Number: US-TEVA-802407ACC

PATIENT
  Age: 15 Year
  Sex: Female

DRUGS (1)
  1. PARAGARD T 380A [Suspect]
     Active Substance: COPPER
     Indication: CONTRACEPTION
     Dates: start: 20170728, end: 20170822

REACTIONS (2)
  - Device expulsion [Recovered/Resolved with Sequelae]
  - Vaginal discharge [Unknown]

NARRATIVE: CASE EVENT DATE: 20170822
